FAERS Safety Report 20061264 (Version 14)
Quarter: 2023Q1

REPORT INFORMATION
  Report Type: Spontaneous
  Country: US (occurrence: US)
  Receive Date: 20211112
  Receipt Date: 20230202
  Transmission Date: 20230418
  Serious: Yes (Hospitalization, Other)
  Sender: FDA-Public Use
  Company Number: US-SUN PHARMACEUTICAL INDUSTRIES LTD-2021R1-310181

PATIENT
  Age: 66 Year
  Sex: Female
  Weight: 45.805 kg

DRUGS (10)
  1. EPOPROSTENOL [Suspect]
     Active Substance: EPOPROSTENOL
     Indication: Pulmonary arterial hypertension
     Dosage: 36 NG/KG/MIN INTRAVENOUS
     Route: 042
     Dates: start: 20210430
  2. EPOPROSTENOL [Suspect]
     Active Substance: EPOPROSTENOL
     Dosage: DOSE 36 NG/KG/MIN
     Route: 042
     Dates: start: 20210430
  3. EPOPROSTENOL [Suspect]
     Active Substance: EPOPROSTENOL
     Indication: Pulmonary arterial hypertension
     Dosage: 36 NG/KG/MIN - INTRAVENOUS
     Route: 042
     Dates: start: 20210430
  4. EPOPROSTENOL [Suspect]
     Active Substance: EPOPROSTENOL
     Dosage: 36 NG/KG/MIN
     Route: 042
     Dates: start: 20210430
  5. EPOPROSTENOL [Suspect]
     Active Substance: EPOPROSTENOL
     Dosage: DOSE 36 NG/KG/MIN
     Route: 042
     Dates: start: 20210430
  6. EPOPROSTENOL [Suspect]
     Active Substance: EPOPROSTENOL
     Dosage: 36 NG/KG/MIN CONTINUOUS
     Route: 042
     Dates: start: 20210430
  7. STERILE WATER [Suspect]
     Active Substance: WATER
     Indication: Product used for unknown indication
     Dosage: UNK
     Route: 065
  8. OPSUMIT [Concomitant]
     Active Substance: MACITENTAN
     Indication: Product used for unknown indication
     Dosage: UNK
     Route: 065
  9. TADALAFIL [Concomitant]
     Active Substance: TADALAFIL
     Indication: Product used for unknown indication
     Dosage: UNK
     Route: 065
  10. ELIQUIS [Concomitant]
     Active Substance: APIXABAN
     Indication: Product used for unknown indication
     Dosage: UNK
     Route: 065

REACTIONS (14)
  - Central venous catheterisation [Unknown]
  - Complication associated with device [Unknown]
  - Device issue [Unknown]
  - Drug ineffective [Unknown]
  - Loss of consciousness [Unknown]
  - Lymphadenopathy [Unknown]
  - Arthritis [Unknown]
  - Expired product administered [Unknown]
  - Nasopharyngitis [Recovering/Resolving]
  - Nervousness [Unknown]
  - Pain in jaw [Not Recovered/Not Resolved]
  - Tremor [Unknown]
  - Weight decreased [Unknown]
  - COVID-19 [Unknown]

NARRATIVE: CASE EVENT DATE: 20230119
